FAERS Safety Report 11456408 (Version 1)
Quarter: 2015Q3

REPORT INFORMATION
  Report Type: Spontaneous
  Country: US (occurrence: US)
  Receive Date: 20150903
  Receipt Date: 20150903
  Transmission Date: 20151125
  Serious: Yes (Hospitalization, Other)
  Sender: FDA-Public Use
  Company Number: US-GLAXOSMITHKLINE-US2015124649

PATIENT
  Age: 72 Year
  Sex: Female

DRUGS (1)
  1. ADVAIR DISKUS [Suspect]
     Active Substance: FLUTICASONE PROPIONATE\SALMETEROL XINAFOATE
     Indication: ASTHMA
     Dosage: 1 PUFF(S), QD
     Route: 055
     Dates: start: 200007

REACTIONS (7)
  - Adverse event [Unknown]
  - Feeling abnormal [Unknown]
  - Drug dose omission [Unknown]
  - Hypotension [Unknown]
  - Incorrect dose administered [Unknown]
  - Chills [Unknown]
  - Stent placement [Unknown]

NARRATIVE: CASE EVENT DATE: 201501
